FAERS Safety Report 8631452 (Version 3)
Quarter: 2012Q4

REPORT INFORMATION
  Report Type: 
  Country: SE (occurrence: SE)
  Receive Date: 20120622
  Receipt Date: 20121023
  Transmission Date: 20130627
  Serious: Yes (Hospitalization)
  Sender: FDA-Public Use
  Company Number: SE-ELI_LILLY_AND_COMPANY-SE201206004585

PATIENT
  Sex: Female
  Weight: 110 kg

DRUGS (7)
  1. BYDUREON [Suspect]
     Indication: DIABETES MELLITUS
     Dosage: UNK, weekly (1/W)
     Dates: start: 20120319, end: 20120521
  2. FURIX [Concomitant]
     Indication: DIURETIC THERAPY
     Dosage: 40 mg, bid
  3. BISOPROLOL [Concomitant]
     Dosage: 10 mg, UNK
  4. DIGOXIN [Concomitant]
     Dosage: .25 mg, UNK
  5. METFORMIN [Concomitant]
     Dosage: 500 mg, qid
  6. SIMVASTATIN [Concomitant]
     Dosage: 20 mg, UNK
  7. ENALAPRIL [Concomitant]
     Dosage: 10 mg, bid

REACTIONS (4)
  - Cardiac failure congestive [Unknown]
  - Vomiting [Recovering/Resolving]
  - Nausea [Recovering/Resolving]
  - Diarrhoea [Recovering/Resolving]
